FAERS Safety Report 6822845-0 (Version None)
Quarter: 2010Q3

REPORT INFORMATION
  Report Type: 
  Country: None (occurrence: None)
  Receive Date: 20100707
  Receipt Date: 20100707
  Transmission Date: 20110219
  Serious: Yes (Life-Threatening)
  Sender: FDA-Public Use
  Company Number: None

PATIENT
  Age: 85 Year
  Sex: Female
  Weight: 54 kg

DRUGS (2)
  1. MIDAZOLAM HCL [Suspect]
     Indication: PREOPERATIVE CARE
     Dosage: 1MG ONCE IV BOLUS
     Route: 040
     Dates: start: 20100617, end: 20100617
  2. MIDAZOLAM HCL [Suspect]
     Indication: SEDATION
     Dosage: 1MG ONCE IV BOLUS
     Route: 040
     Dates: start: 20100617, end: 20100617

REACTIONS (4)
  - BRADYCARDIA [None]
  - DYSPNOEA [None]
  - HYPOTENSION [None]
  - HYPOXIA [None]
